FAERS Safety Report 14411455 (Version 2)
Quarter: 2018Q1

REPORT INFORMATION
  Report Type: Spontaneous
  Country: US (occurrence: US)
  Receive Date: 20180119
  Receipt Date: 20180124
  Transmission Date: 20180509
  Serious: No
  Sender: FDA-Public Use
  Company Number: US-GLAXOSMITHKLINE-US2018007399

PATIENT
  Sex: Male

DRUGS (1)
  1. ALLI [Suspect]
     Active Substance: ORLISTAT
     Indication: PRODUCT USED FOR UNKNOWN INDICATION
     Dosage: UNK

REACTIONS (9)
  - Steatorrhoea [Unknown]
  - Drug ineffective [Unknown]
  - Flatulence [Unknown]
  - Rectal discharge [Unknown]
  - Adverse drug reaction [Unknown]
  - Diarrhoea [Unknown]
  - Treatment noncompliance [Unknown]
  - Product quality issue [Unknown]
  - Faeces discoloured [Unknown]
